FAERS Safety Report 7288064-1 (Version None)
Quarter: 2011Q1

REPORT INFORMATION
  Report Type: 
  Country: None (occurrence: None)
  Receive Date: 20110211
  Receipt Date: 20110209
  Transmission Date: 20110831
  Serious: Yes (Death, Hospitalization, Other)
  Sender: FDA-Public Use
  Company Number: PHHY2010JP59755

PATIENT
  Sex: Male
  Weight: 61 kg

DRUGS (7)
  1. PREDNISOLONE [Concomitant]
     Indication: INTERSTITIAL LUNG DISEASE
     Dosage: 60 MG, UNK
  2. ACTONEL [Concomitant]
     Indication: PROPHYLAXIS
     Dosage: 17.5MG
     Dates: start: 20071109
  3. SORAFENIB TOSILATE [Concomitant]
     Indication: METASTATIC RENAL CELL CARCINOMA
     Dosage: 800MG
     Route: 048
     Dates: start: 20081225, end: 20100525
  4. AFINITOR [Suspect]
     Indication: METASTATIC RENAL CELL CARCINOMA
     Dosage: 10 MG, DAILY
     Route: 048
     Dates: start: 20100629, end: 20100820
  5. MEDROL [Concomitant]
     Dosage: 40MG
     Route: 048
     Dates: start: 20071106, end: 20100819
  6. BARACLUDE [Concomitant]
     Dosage: 0.5MG
     Route: 048
     Dates: start: 20080627
  7. CELLCEPT [Concomitant]
     Dosage: 1500MG
     Route: 048
     Dates: start: 20071106, end: 20100731

REACTIONS (6)
  - PYREXIA [None]
  - HEPATITIS B [None]
  - NEOPLASM MALIGNANT [None]
  - NEUTROPHIL COUNT DECREASED [None]
  - INTERSTITIAL LUNG DISEASE [None]
  - RESPIRATORY DISTRESS [None]
